FAERS Safety Report 18512454 (Version 1)
Quarter: 2020Q4

REPORT INFORMATION
  Report Type: Report from Study
  Country: None (occurrence: US)
  Receive Date: 20201117
  Receipt Date: 20201117
  Transmission Date: 20210114
  Serious: No
  Sender: FDA-Public Use
  Company Number: US-BIOVITRUM-2020US5383

PATIENT
  Age: 43 Year
  Sex: Female

DRUGS (1)
  1. KINERET [Suspect]
     Active Substance: ANAKINRA
     Indication: PYREXIA
     Route: 058
     Dates: start: 20201001

REACTIONS (6)
  - Injection site swelling [Unknown]
  - Injection site discolouration [Unknown]
  - Skin reaction [Unknown]
  - Injection site pain [Unknown]
  - Injection site inflammation [Unknown]
  - Off label use [Not Recovered/Not Resolved]

NARRATIVE: CASE EVENT DATE: 20201001
